FAERS Safety Report 4830629-8 (Version None)
Quarter: 2005Q4

REPORT INFORMATION
  Report Type: 
  Country: None (occurrence: None)
  Receive Date: 20051114
  Receipt Date: 20051027
  Transmission Date: 20060501
  Serious: Yes (Hospitalization)
  Sender: FDA-Public Use
  Company Number: 430015E05GBR

PATIENT
  Age: 60 Year
  Sex: Male

DRUGS (2)
  1. NOVANTRONE [Suspect]
     Indication: FEBRILE NEUTROPENIA
  2. CHLORAMBUCIL [Suspect]
     Indication: FEBRILE NEUTROPENIA

REACTIONS (3)
  - CHILLS [None]
  - DIZZINESS [None]
  - HYPOTHERMIA [None]
